FAERS Safety Report 8237961-9 (Version None)
Quarter: 2012Q1

REPORT INFORMATION
  Report Type: 
  Country: None (occurrence: None)
  Receive Date: 20120327
  Receipt Date: 20120315
  Transmission Date: 20120608
  Serious: Yes (Other)
  Sender: FDA-Public Use
  Company Number: JP-FRI-1000029294

PATIENT
  Age: 82 Year
  Sex: Female

DRUGS (8)
  1. MENEST [Concomitant]
  2. LEVOTHYROXINE SODIUM [Concomitant]
  3. ASPARA [Concomitant]
  4. PRAMIPEXOLE DIHYDROCHLORIDE [Concomitant]
  5. MICARDIS [Concomitant]
  6. AMARYL [Concomitant]
  7. MEMANTINE [Suspect]
     Indication: DEMENTIA ALZHEIMER'S TYPE
     Dosage: 20 MG
     Route: 048
     Dates: start: 20110710, end: 20110720
  8. ALDACTONE [Concomitant]
     Dates: end: 20110720

REACTIONS (1)
  - RENAL IMPAIRMENT [None]
